FAERS Safety Report 9321739 (Version 1)
Quarter: 2013Q2

REPORT INFORMATION
  Report Type: Spontaneous
  Country: DE (occurrence: None)
  Receive Date: 20130529
  Receipt Date: 20130529
  Transmission Date: 20140414
  Serious: Yes (Hospitalization, Other)
  Sender: FDA-Public Use
  Company Number: AUR-APL-2013-04342

PATIENT
  Age: 34 Year
  Sex: Female
  Weight: 58 kg

DRUGS (3)
  1. RAMIPRIL (RAMIPRIL) [Suspect]
     Indication: HYPERTENSION
     Route: 048
     Dates: start: 20111227, end: 20120227
  2. L THYROXIN (LEVOTHYROXINE SODIUM) [Concomitant]
  3. VELNATAL PLUS (VELNATAL PLUS) [Concomitant]

REACTIONS (2)
  - Pregnancy [None]
  - Exposure during pregnancy [None]
